FAERS Safety Report 7614133-X (Version None)
Quarter: 2011Q3

REPORT INFORMATION
  Report Type: 
  Country: None (occurrence: None)
  Receive Date: 20110708
  Receipt Date: 20110630
  Transmission Date: 20111222
  Serious: Yes (Other)
  Sender: FDA-Public Use
  Company Number: OTH-PAT-2011003

PATIENT
  Sex: Female

DRUGS (2)
  1. CYSTADANE [Suspect]
     Indication: HOMOCYSTINURIA
     Dosage: 3,900 G EVERY DAY
     Dates: start: 20071206
  2. PYRIDOXINE HCL [Concomitant]

REACTIONS (2)
  - NAUSEA [None]
  - VOMITING [None]
